FAERS Safety Report 11180464 (Version 1)
Quarter: 2015Q2

REPORT INFORMATION
  Report Type: Spontaneous
  Country: US (occurrence: None)
  Receive Date: 20150610
  Receipt Date: 20150610
  Transmission Date: 20150821
  Serious: Yes (Hospitalization)
  Sender: FDA-Public Use
  Company Number: None

PATIENT
  Age: 95 Year
  Sex: Male

DRUGS (1)
  1. WARFARIN [Suspect]
     Active Substance: WARFARIN
     Indication: ATRIAL FIBRILLATION
     Dosage: MG EVERY DAY PO
     Route: 048
     Dates: start: 20110811, end: 20121024

REACTIONS (4)
  - Haematocrit decreased [None]
  - Haemorrhage [None]
  - Haemoglobin decreased [None]
  - Gastric haemorrhage [None]

NARRATIVE: CASE EVENT DATE: 20121024
